FAERS Safety Report 26009787 (Version 1)
Quarter: 2025Q4

REPORT INFORMATION
  Report Type: Report from Study
  Country: US (occurrence: US)
  Receive Date: 20251107
  Receipt Date: 20251107
  Transmission Date: 20260118
  Serious: Yes (Death, Other)
  Sender: AMNEAL
  Company Number: US-AMNEAL PHARMACEUTICALS-2025-AMRX-04195

PATIENT
  Sex: Female

DRUGS (4)
  1. CARBIDOPA\LEVODOPA [Suspect]
     Active Substance: CARBIDOPA\LEVODOPA
     Indication: Product used for unknown indication
     Dosage: 2 CAPSULES, 4X/DAY
     Route: 048
  2. CARBIDOPA\LEVODOPA [Suspect]
     Active Substance: CARBIDOPA\LEVODOPA
     Dosage: 36.25-145MG, 2 CAPSULES, 3X/DAY
     Route: 048
  3. CARBIDOPA\LEVODOPA [Suspect]
     Active Substance: CARBIDOPA\LEVODOPA
     Dosage: 36.25-145MG 3 CAPSULES IN THE MORNING AND AFTERNOON THEN 2 CAPSULES IN THE EVENING
     Route: 048
     Dates: start: 20231004
  4. CARBIDOPA\LEVODOPA [Suspect]
     Active Substance: CARBIDOPA\LEVODOPA
     Dosage: 36.25-145MG 3 CAPSULES IN THE MORNING, AFTERNOON, AND EVENING
     Route: 048
     Dates: start: 20240201

REACTIONS (1)
  - Parkinson^s disease [Fatal]
